FAERS Safety Report 8405026-9 (Version None)
Quarter: 2012Q2

REPORT INFORMATION
  Report Type: 
  Country: None (occurrence: None)
  Receive Date: 20120601
  Receipt Date: 20120117
  Transmission Date: 20120825
  Serious: No
  Sender: FDA-Public Use
  Company Number: US-NOVEN-12US003937

PATIENT
  Age: 15 Year
  Sex: Female

DRUGS (1)
  1. DAYTRANA [Suspect]
     Indication: ATTENTION DEFICIT/HYPERACTIVITY DISORDER
     Dosage: 10 MG, QD
     Route: 062
     Dates: start: 20110101

REACTIONS (6)
  - APPLICATION SITE PRURITUS [None]
  - APPLICATION SITE PAIN [None]
  - APPLICATION SITE ERYTHEMA [None]
  - DRUG ADMINISTERED AT INAPPROPRIATE SITE [None]
  - PRODUCT QUALITY ISSUE [None]
  - APPLICATION SITE IRRITATION [None]
